FAERS Safety Report 9396280 (Version 2)
Quarter: 2013Q3

REPORT INFORMATION
  Report Type: Spontaneous
  Country: US (occurrence: US)
  Receive Date: 20130711
  Receipt Date: 20130725
  Transmission Date: 20140515
  Serious: No
  Sender: FDA-Public Use
  Company Number: US-PFIZER INC-2013204034

PATIENT
  Age: 64 Year
  Sex: Female

DRUGS (21)
  1. LYRICA [Suspect]
     Dosage: 75 MG, 2X/DAY
  2. LYRICA [Suspect]
     Dosage: 150 MG, 2X/DAY
     Dates: end: 201307
  3. DETROL [Concomitant]
     Dosage: 1 MG, 2X/DAY
     Route: 048
  4. MELOXICAM [Concomitant]
     Dosage: 15 MG, 1X/DAY
     Route: 048
  5. AMLODIPINE [Concomitant]
     Dosage: 10 MG, 1X/DAY
     Route: 048
  6. GALENIC /DOCUSATE/SENNA/ [Concomitant]
     Dosage: DOCUSATE-SENNA 50 MG-8.6 MG TABLET 2 TAB(S) ONCE A DAY (AT BEDTIME)
     Route: 048
  7. HYZAAR [Concomitant]
     Dosage: HYDROCHLOROTHIAZIDE-LOSARTAN 12.5 MG-50 MG TABLET 1 TAB(S) ONCE A DAY
     Route: 048
  8. MULTIPLE VITAMINS [Concomitant]
     Dosage: 1 DF, 1X/DAY
     Route: 048
  9. VITACAL [Concomitant]
     Dosage: CALCIUM 600+D 600 MG-200 UNITS TABLET 1 TAB(S) TWICE A DAY
     Route: 048
  10. PRAVASTATIN [Concomitant]
     Dosage: 20 MG TABLET 1 TAB(S) ONCE A DAY (AT BEDTIME)
     Route: 048
  11. ACIPHEX [Concomitant]
     Dosage: 20 MG, 1X/DAY
     Route: 048
  12. QVAR [Concomitant]
     Dosage: 80 MCG/INH AEROSOL INHALED 1 PUFF(S) ONCE DAILY
  13. CETIRIZINE [Concomitant]
     Dosage: 10 MG, 1X/DAY
     Route: 048
  14. DICYCLOMINE [Concomitant]
     Dosage: 10 MG, 2X/DAY
     Route: 048
  15. PROVENTIL HFA ^KEY PHARMACEUTICAL^ [Concomitant]
     Dosage: FREE 90 MCG/INH AEROSOL WITH ADAPTER INHALED 2 PUFF(S) 4 TIMES A DAY
  16. FLUTICASONE NASAL [Concomitant]
     Dosage: 0.05 MG/INH SPRAY INTRANASALLY 1 SPRAY(S) EVERY 12 HOURS
  17. GABAPENTIN [Concomitant]
     Dosage: 300 MG, 3X/DAY
     Route: 048
  18. FLUOXETINE [Concomitant]
     Dosage: 40 MG, 1X/DAY
     Route: 048
  19. PREDNISONE [Concomitant]
     Dosage: 20 MG TABLET 1 TAB(S) THREE TIMES DAILY ON DAY 1 THRU 3
     Route: 048
  20. PREDNISONE [Concomitant]
     Dosage: 20 MG TABLET 1 TAB(S) TWICE DAILY ON DAY 4 THRU 6
     Route: 048
  21. PREDNISONE [Concomitant]
     Dosage: 20 MG TABLET 1 TAB(S) ONCE DAILY ON DAILY 7-9

REACTIONS (4)
  - Pain [Not Recovered/Not Resolved]
  - Insomnia [Not Recovered/Not Resolved]
  - Feeling abnormal [Not Recovered/Not Resolved]
  - Malaise [Unknown]
